FAERS Safety Report 13926805 (Version 1)
Quarter: 2017Q3

REPORT INFORMATION
  Report Type: Spontaneous
  Country: DE (occurrence: DE)
  Receive Date: 20170901
  Receipt Date: 20170901
  Transmission Date: 20171127
  Serious: Yes (Congenital Anomaly)
  Sender: FDA-Public Use
  Company Number: DE-AUROBINDO-AUR-APL-2017-39703

PATIENT
  Age: 1 Day
  Sex: Male
  Weight: 4.5 kg

DRUGS (5)
  1. AKINETON [Concomitant]
     Active Substance: BIPERIDEN HYDROCHLORIDE
     Indication: EXTRAPYRAMIDAL DISORDER
     Dosage: 25 MG, DAILY
     Route: 064
  2. ABILIFY [Suspect]
     Active Substance: ARIPIPRAZOLE
     Indication: SCHIZOAFFECTIVE DISORDER
     Dosage: 10 MG, DAILY
     Route: 064
     Dates: start: 20160403, end: 20161225
  3. QUETIAPINE. [Suspect]
     Active Substance: QUETIAPINE
     Indication: SLEEP DISORDER
     Dosage: 50 MG, DAILY
     Route: 064
     Dates: start: 20160403, end: 20161230
  4. FOLSAEURE [Suspect]
     Active Substance: FOLIC ACID
     Indication: PROPHYLAXIS OF NEURAL TUBE DEFECT
     Dosage: UNK
     Route: 064
     Dates: start: 20160505, end: 20160805
  5. GRIPPEIMPFSTOFF [Concomitant]
     Active Substance: INFLUENZA VIRUS VACCINE
     Indication: IMMUNISATION
     Route: 064

REACTIONS (5)
  - Large for dates baby [Recovered/Resolved]
  - Atrial septal defect [Unknown]
  - Aortic stenosis [Unknown]
  - Transposition of the great vessels [Unknown]
  - Ventricular septal defect [Unknown]

NARRATIVE: CASE EVENT DATE: 20170104
